FAERS Safety Report 12437296 (Version 2)
Quarter: 2016Q3

REPORT INFORMATION
  Report Type: Spontaneous
  Country: IL (occurrence: IL)
  Receive Date: 20160606
  Receipt Date: 20160707
  Transmission Date: 20161109
  Serious: Yes (Other)
  Sender: FDA-Public Use
  Company Number: IL-BAXTER-2016BAX028423

PATIENT
  Age: 72 Year
  Sex: Female

DRUGS (18)
  1. NACL 0.9% USP [Suspect]
     Active Substance: SODIUM CHLORIDE
     Route: 065
     Dates: start: 20160502
  2. TAXOL [Suspect]
     Active Substance: PACLITAXEL
     Route: 065
     Dates: start: 20160502
  3. TAXOL [Suspect]
     Active Substance: PACLITAXEL
     Dosage: 30 MG/5 ML
     Route: 065
     Dates: start: 20160516, end: 20160516
  4. VITAMIN D [Concomitant]
     Active Substance: CHOLECALCIFEROL
     Indication: PRODUCT USED FOR UNKNOWN INDICATION
     Route: 065
  5. NACL 0.9% USP [Suspect]
     Active Substance: SODIUM CHLORIDE
     Indication: MEDICATION DILUTION
     Route: 065
     Dates: start: 20160418
  6. TAXOL [Suspect]
     Active Substance: PACLITAXEL
     Dosage: 100 MG/16.7 ML
     Route: 065
     Dates: start: 20160524, end: 20160524
  7. ENALADEX [Concomitant]
     Active Substance: ENALAPRIL MALEATE
     Indication: PRODUCT USED FOR UNKNOWN INDICATION
     Route: 065
  8. TAXOL [Suspect]
     Active Substance: PACLITAXEL
     Indication: BREAST CANCER
     Route: 065
     Dates: start: 20160418
  9. TAXOL [Suspect]
     Active Substance: PACLITAXEL
     Dosage: 30 MG/5 ML
     Route: 065
     Dates: start: 20160509, end: 20160509
  10. CALCIUM [Concomitant]
     Active Substance: CALCIUM
     Indication: PRODUCT USED FOR UNKNOWN INDICATION
     Route: 065
  11. NACL 0.9% USP [Suspect]
     Active Substance: SODIUM CHLORIDE
     Dosage: 250 ML
     Route: 065
     Dates: start: 20160509, end: 20160509
  12. TAXOL [Suspect]
     Active Substance: PACLITAXEL
     Dosage: 100 MG/16.7 ML
     Route: 065
     Dates: start: 20160516, end: 20160516
  13. XANAGIS [Concomitant]
     Indication: PRODUCT USED FOR UNKNOWN INDICATION
     Route: 065
  14. TAXOL [Suspect]
     Active Substance: PACLITAXEL
     Dosage: 30 MG/5 ML
     Route: 065
     Dates: start: 20160524, end: 20160524
  15. OMEPRADEX [Concomitant]
     Active Substance: OMEPRAZOLE
     Indication: PRODUCT USED FOR UNKNOWN INDICATION
     Route: 065
  16. NACL 0.9% USP [Suspect]
     Active Substance: SODIUM CHLORIDE
     Dosage: 250 ML
     Route: 065
     Dates: start: 20160516, end: 20160516
  17. NACL 0.9% USP [Suspect]
     Active Substance: SODIUM CHLORIDE
     Dosage: 250 ML
     Route: 065
     Dates: start: 20160524, end: 20160524
  18. LITORVA [Concomitant]
     Active Substance: ATORVASTATIN CALCIUM
     Indication: PRODUCT USED FOR UNKNOWN INDICATION
     Route: 065

REACTIONS (3)
  - Mobility decreased [Recovered/Resolved]
  - Asthenia [Recovered/Resolved]
  - Diarrhoea [Recovered/Resolved]

NARRATIVE: CASE EVENT DATE: 201605
